FAERS Safety Report 9723262 (Version 2)
Quarter: 2014Q1

REPORT INFORMATION
  Report Type: Report from Study
  Country: CA (occurrence: CA)
  Receive Date: 20131202
  Receipt Date: 20140115
  Transmission Date: 20141002
  Serious: Yes (Other)
  Sender: FDA-Public Use
  Company Number: CA-JNJFOC-20131115266

PATIENT
  Sex: Male
  Weight: 108.9 kg

DRUGS (12)
  1. REMICADE [Suspect]
     Indication: PSORIASIS
     Route: 042
     Dates: start: 20140106
  2. REMICADE [Suspect]
     Indication: PSORIASIS
     Route: 042
     Dates: start: 20080721, end: 20131106
  3. REMICADE [Suspect]
     Indication: PSORIASIS
     Route: 042
     Dates: start: 2006
  4. ADALAT XL [Concomitant]
     Route: 065
  5. GLICLAZIDE [Concomitant]
     Route: 065
  6. PLAVIX [Concomitant]
     Route: 065
  7. PANTOLOC [Concomitant]
     Route: 065
  8. RAMIPRIL [Concomitant]
     Route: 065
  9. METOPROLOL [Concomitant]
     Route: 065
  10. DOMPERIDONE [Concomitant]
     Route: 065
  11. TEMAZEPAM [Concomitant]
     Route: 065
  12. METFORMIN [Concomitant]
     Route: 065

REACTIONS (2)
  - Lupus-like syndrome [Unknown]
  - Chronic fatigue syndrome [Unknown]
